FAERS Safety Report 9289052 (Version 4)
Quarter: 2014Q2

REPORT INFORMATION
  Report Type: Spontaneous
  Country: US (occurrence: US)
  Receive Date: 20130514
  Receipt Date: 20140522
  Transmission Date: 20141212
  Serious: Yes (Disabling, Other)
  Sender: FDA-Public Use
  Company Number: US-009507513-1305USA008421

PATIENT
  Sex: Male

DRUGS (9)
  1. PROPECIA [Suspect]
     Indication: ANDROGENETIC ALOPECIA
     Dosage: 1 MG, DAILY
     Route: 048
     Dates: start: 20090304
  2. PROSCAR [Suspect]
     Indication: ANDROGENETIC ALOPECIA
     Dosage: 5 MG, QUARTERED
     Route: 048
     Dates: start: 20100603, end: 20120522
  3. PROSCAR [Suspect]
     Dosage: 5 MG, DAILY AS DIRECTED
     Route: 048
     Dates: start: 20120524
  4. FINASTERIDE [Suspect]
     Dosage: 5 MG, TAKE AS DIRECTED
  5. FINASTERIDE [Suspect]
     Indication: ANDROGENETIC ALOPECIA
     Dosage: 1 MG,DAILY
     Route: 048
  6. FINASTERIDE [Suspect]
     Indication: ANDROGENETIC ALOPECIA
     Dosage: 5 MG SPLIT INTO 3-4
     Route: 048
     Dates: start: 200906
  7. FINASTERIDE [Suspect]
     Indication: PROSTATISM
     Dosage: 5 MG, DAILY
     Route: 048
  8. LORATADINE [Concomitant]
     Indication: HYPERSENSITIVITY
     Dosage: 10 MG, QD PRN
     Route: 048
  9. PROZAC [Suspect]
     Indication: PRODUCT USED FOR UNKNOWN INDICATION
     Route: 048

REACTIONS (23)
  - Ankle fracture [Not Recovered/Not Resolved]
  - Major depression [Unknown]
  - Anxiety [Not Recovered/Not Resolved]
  - Emotional disorder [Not Recovered/Not Resolved]
  - Neuralgia [Unknown]
  - Fall [Unknown]
  - Joint dislocation [Unknown]
  - Wrong technique in drug usage process [Unknown]
  - Drug administration error [Unknown]
  - Arthralgia [Unknown]
  - Immune thrombocytopenic purpura [Unknown]
  - Joint range of motion decreased [Unknown]
  - Attention deficit/hyperactivity disorder [Unknown]
  - Anorgasmia [Unknown]
  - Arthritis [Unknown]
  - Narcolepsy [Unknown]
  - Libido decreased [Unknown]
  - Sexual dysfunction [Not Recovered/Not Resolved]
  - Erectile dysfunction [Not Recovered/Not Resolved]
  - Semen volume decreased [Unknown]
  - Folliculitis [Unknown]
  - Acne [Unknown]
  - Rosacea [Unknown]
